FAERS Safety Report 4507864-1 (Version None)
Quarter: 2004Q4

REPORT INFORMATION
  Report Type: 
  Country: None (occurrence: None)
  Receive Date: 20041123
  Receipt Date: 20041109
  Transmission Date: 20050328
  Serious: Yes (Disabling)
  Sender: FDA-Public Use
  Company Number: GB-MERCK-0411THA00002B1

PATIENT
  Sex: Female

DRUGS (1)
  1. ZOCOR [Suspect]
     Indication: TYPE IIA HYPERLIPIDAEMIA

REACTIONS (3)
  - BRAIN DAMAGE [None]
  - DEVELOPMENTAL DELAY [None]
  - TRANSMISSION OF DRUG VIA SEMEN [None]
